FAERS Safety Report 4983343-2 (Version None)
Quarter: 2006Q2

REPORT INFORMATION
  Report Type: 
  Country: None (occurrence: None)
  Receive Date: 20060419
  Receipt Date: 20060406
  Transmission Date: 20061013
  Serious: Yes (Other)
  Sender: FDA-Public Use
  Company Number: 2006EU001143

PATIENT
  Age: 35 Year
  Sex: Male
  Weight: 85 kg

DRUGS (3)
  1. PROTOPIC [Suspect]
     Indication: ECZEMA
     Dosage: 0.03%, TOPICAL
     Route: 061
     Dates: start: 20050301
  2. RANITIDINE [Concomitant]
  3. FEXOFENADINE HCL [Concomitant]

REACTIONS (7)
  - ALCOHOL USE [None]
  - AMNESIA [None]
  - CONFUSIONAL STATE [None]
  - DEPRESSION [None]
  - INCOHERENT [None]
  - PSYCHOTIC DISORDER [None]
  - SUICIDAL IDEATION [None]
